FAERS Safety Report 4942805-4 (Version None)
Quarter: 2006Q1

REPORT INFORMATION
  Report Type: 
  Country: None (occurrence: None)
  Receive Date: 20060314
  Receipt Date: 20060113
  Transmission Date: 20060701
  Serious: Yes (Other)
  Sender: FDA-Public Use
  Company Number: PHHO2006CL00980

PATIENT
  Age: 63 Year
  Sex: Female

DRUGS (6)
  1. ATENOLOL [Concomitant]
  2. LEXAPRO [Concomitant]
  3. ALPRAZOLAM [Concomitant]
  4. OMEPRAZOLE [Concomitant]
  5. TAREG D [Suspect]
     Dosage: 160/12.5 MG (HALF TABLET DAILY)
     Route: 048
  6. ASPIRINA [Concomitant]

REACTIONS (4)
  - ARRHYTHMIA [None]
  - BLOOD PRESSURE DECREASED [None]
  - DEPRESSION [None]
  - HYPERHIDROSIS [None]
